FAERS Safety Report 8796153 (Version 2)
Quarter: 2012Q4

REPORT INFORMATION
  Report Type: 
  Country: US (occurrence: US)
  Receive Date: 20120919
  Receipt Date: 20121119
  Transmission Date: 20130627
  Serious: Yes (Death, Hospitalization)
  Sender: FDA-Public Use
  Company Number: US-ELI_LILLY_AND_COMPANY-US201209003396

PATIENT
  Sex: Female
  Weight: 64 kg

DRUGS (1)
  1. GEMZAR [Suspect]
     Indication: BREAST CANCER
     Dosage: UNK, unknown
     Route: 065

REACTIONS (2)
  - Malignant neoplasm progression [Fatal]
  - Hospitalisation [Unknown]
